FAERS Safety Report 8794625 (Version 1)
Quarter: 2012Q4

REPORT INFORMATION
  Report Type: 
  Country: US (occurrence: US)
  Receive Date: 20120917
  Receipt Date: 20120917
  Transmission Date: 20130627
  Serious: No
  Sender: FDA-Public Use
  Company Number: US-ASTRAZENECA-2012SE65408

PATIENT
  Age: 49 Year
  Sex: Male
  Weight: 180 kg

DRUGS (1)
  1. SYMBICORT PMDI [Suspect]
     Indication: ASTHMA
     Dosage: 160/4.5 AS NEEDED
     Route: 055

REACTIONS (3)
  - Rash [Unknown]
  - Off label use [Unknown]
  - Drug ineffective [Unknown]
